FAERS Safety Report 9159634 (Version 1)
Quarter: 2013Q1

REPORT INFORMATION
  Report Type: Spontaneous
  Country: US (occurrence: US)
  Receive Date: 20130313
  Receipt Date: 20130313
  Transmission Date: 20140127
  Serious: No
  Sender: FDA-Public Use
  Company Number: US-PFIZER INC-2013081159

PATIENT
  Age: 64 Year
  Sex: Female
  Weight: 56.69 kg

DRUGS (4)
  1. NEURONTIN [Suspect]
     Indication: INTERVERTEBRAL DISC DEGENERATION
     Dosage: 300 MG, 1X/DAY
     Route: 048
     Dates: start: 201212, end: 2013
  2. NEURONTIN [Suspect]
     Dosage: 300 MG, 1X/DAY
     Route: 048
     Dates: start: 2013, end: 20130306
  3. PRAVACHOL [Concomitant]
     Dosage: UNK
  4. WELLBUTRIN [Concomitant]
     Dosage: UNK

REACTIONS (1)
  - Blood pressure increased [Recovered/Resolved]
